FAERS Safety Report 4879227-0 (Version None)
Quarter: 2006Q1

REPORT INFORMATION
  Report Type: 
  Country: None (occurrence: None)
  Receive Date: 20060112
  Receipt Date: 20060103
  Transmission Date: 20060701
  Serious: Yes (Life-Threatening, Hospitalization)
  Sender: FDA-Public Use
  Company Number: FR-ABBOTT-06P-056-0321117-00

PATIENT
  Age: 73 Year
  Sex: Male

DRUGS (4)
  1. DEPAKENE [Suspect]
     Indication: EPILEPSY
     Route: 048
     Dates: end: 20050615
  2. LIPANTHYL TABLETS [Suspect]
     Indication: HYPERTRIGLYCERIDAEMIA
     Route: 048
     Dates: end: 20050615
  3. NICERGOLINE [Suspect]
     Indication: DRUG USE FOR UNKNOWN INDICATION
     Route: 048
     Dates: end: 20050615
  4. LAMOTRIGINE [Concomitant]
     Indication: DRUG USE FOR UNKNOWN INDICATION
     Dates: start: 20050615

REACTIONS (12)
  - BALANCE DISORDER [None]
  - COGNITIVE DETERIORATION [None]
  - CONFUSIONAL STATE [None]
  - DISTURBANCE IN ATTENTION [None]
  - ENCEPHALOPATHY [None]
  - EXTRAPYRAMIDAL DISORDER [None]
  - FACIAL PALSY [None]
  - GAIT DISTURBANCE [None]
  - HEMIPARESIS [None]
  - NEUROLOGICAL SYMPTOM [None]
  - SOMNOLENCE [None]
  - UNEVALUABLE EVENT [None]
